FAERS Safety Report 11076153 (Version 1)
Quarter: 2015Q2

REPORT INFORMATION
  Report Type: Spontaneous
  Country: DE (occurrence: DE)
  Receive Date: 20150429
  Receipt Date: 20150429
  Transmission Date: 20150821
  Serious: Yes (Hospitalization, Other)
  Sender: FDA-Public Use
  Company Number: DE-ELI_LILLY_AND_COMPANY-DE201504006284

PATIENT
  Age: 59 Year
  Sex: Male

DRUGS (11)
  1. ZYPREXA [Suspect]
     Active Substance: OLANZAPINE
     Indication: PRODUCT USED FOR UNKNOWN INDICATION
     Dosage: 10 MG, UNKNOWN
     Route: 048
     Dates: start: 20100901, end: 20100914
  2. ERGENYL CHRONO [Interacting]
     Active Substance: VALPROIC ACID
     Indication: PRODUCT USED FOR UNKNOWN INDICATION
     Dosage: 1200 MG, QD
     Route: 048
     Dates: start: 20100904, end: 20100914
  3. SIMVASTATIN. [Concomitant]
     Active Substance: SIMVASTATIN
     Dosage: UNK, QD
     Route: 048
  4. EUTHYROX [Concomitant]
     Active Substance: LEVOTHYROXINE SODIUM
     Dosage: 75 UG, QD
     Route: 048
  5. AKINETON [Interacting]
     Active Substance: BIPERIDEN HYDROCHLORIDE
     Indication: PRODUCT USED FOR UNKNOWN INDICATION
     Dosage: 4 MG, QD
     Route: 048
     Dates: start: 20100911, end: 20100914
  6. DOCITON [Interacting]
     Active Substance: PROPRANOLOL HYDROCHLORIDE
     Indication: PRODUCT USED FOR UNKNOWN INDICATION
     Dosage: 30 MG, QD
     Route: 048
     Dates: start: 20100901
  7. AKINETON [Interacting]
     Active Substance: BIPERIDEN HYDROCHLORIDE
     Dosage: 2 MG, QD
     Route: 048
     Dates: start: 20100915, end: 20100916
  8. QUILONORM                          /00033702/ [Concomitant]
     Active Substance: LITHIUM CARBONATE
     Dosage: UNK, UNKNOWN
     Route: 048
     Dates: start: 20100901, end: 20100914
  9. TAVOR [Concomitant]
     Active Substance: LORAZEPAM
     Dosage: UNK, UNKNOWN
     Route: 048
  10. HALDOL [Concomitant]
     Active Substance: HALOPERIDOL
     Dosage: 5 MG, QD
     Route: 048
     Dates: start: 20100911, end: 20100921
  11. PLANUM                             /00393701/ [Concomitant]
     Dosage: 20 MG, QD
     Route: 048
     Dates: start: 20100911, end: 20100913

REACTIONS (10)
  - Restlessness [Recovered/Resolved]
  - Tachycardia [Unknown]
  - Abnormal behaviour [Unknown]
  - Drug interaction [Unknown]
  - Delirium [Recovered/Resolved]
  - Ammonia decreased [Unknown]
  - Sleep disorder [Recovered/Resolved]
  - Disorientation [Recovered/Resolved]
  - Disturbance in attention [Recovered/Resolved]
  - Hypertension [Unknown]

NARRATIVE: CASE EVENT DATE: 20100906
